FAERS Safety Report 8795017 (Version 2)
Quarter: 2015Q3

REPORT INFORMATION
  Report Type: Report from Study
  Country: US (occurrence: US)
  Receive Date: 20120917
  Receipt Date: 20150701
  Transmission Date: 20151125
  Serious: Yes (Death)
  Sender: FDA-Public Use
  Company Number: US-ROCHE-1127616

PATIENT
  Age: 75 Year
  Sex: Female

DRUGS (22)
  1. CAMPTOSAR [Concomitant]
     Active Substance: IRINOTECAN HYDROCHLORIDE
     Route: 042
  2. DIPHENHYDRAMINE. [Concomitant]
     Active Substance: DIPHENHYDRAMINE
     Route: 042
  3. EPOETIN ALFA [Concomitant]
     Active Substance: ERYTHROPOIETIN
     Route: 065
  4. TEMODAR [Concomitant]
     Active Substance: TEMOZOLOMIDE
  5. DECADRON [Concomitant]
     Active Substance: DEXAMETHASONE
     Route: 042
  6. ZANTAC [Concomitant]
     Active Substance: RANITIDINE HYDROCHLORIDE
     Route: 065
  7. DEXAMETHASONE SODIUM PHOSPHATE. [Concomitant]
     Active Substance: DEXAMETHASONE SODIUM PHOSPHATE
     Route: 042
  8. ACETAMINOPHEN. [Concomitant]
     Active Substance: ACETAMINOPHEN
     Route: 048
  9. VANCOMYCIN [Concomitant]
     Active Substance: VANCOMYCIN
     Route: 065
  10. LEVAQUIN [Concomitant]
     Active Substance: LEVOFLOXACIN
  11. AVAPRO [Concomitant]
     Active Substance: IRBESARTAN
  12. RITALIN [Concomitant]
     Active Substance: METHYLPHENIDATE HYDROCHLORIDE
  13. ATIVAN [Concomitant]
     Active Substance: LORAZEPAM
     Route: 042
  14. ALOXI [Concomitant]
     Active Substance: PALONOSETRON HYDROCHLORIDE
     Route: 042
  15. ZOFRAN [Concomitant]
     Active Substance: ONDANSETRON HYDROCHLORIDE
     Route: 042
  16. AVASTIN [Suspect]
     Active Substance: BEVACIZUMAB
     Indication: BRAIN NEOPLASM MALIGNANT
     Route: 042
     Dates: start: 20061018
  17. PALONOSETRON HYDROCHLORIDE [Concomitant]
     Active Substance: PALONOSETRON HYDROCHLORIDE
     Route: 065
  18. DIFLUCAN [Concomitant]
     Active Substance: FLUCONAZOLE
  19. CAMPTOSAR [Concomitant]
     Active Substance: IRINOTECAN HYDROCHLORIDE
     Route: 042
  20. BENADRYL [Concomitant]
     Active Substance: DIPHENHYDRAMINE HYDROCHLORIDE
     Route: 042
  21. TYLENOL [Concomitant]
     Active Substance: ACETAMINOPHEN
     Route: 048
  22. LORAZEPAM. [Concomitant]
     Active Substance: LORAZEPAM
     Route: 042

REACTIONS (25)
  - Sinusitis [Recovered/Resolved]
  - Bronchitis [Recovered/Resolved]
  - Decreased appetite [Unknown]
  - Malaise [Unknown]
  - Impaired healing [Recovering/Resolving]
  - Tooth disorder [Unknown]
  - Cough [Recovered/Resolved]
  - Oedema [Unknown]
  - Weight decreased [Unknown]
  - Off label use [Unknown]
  - Asthenia [Unknown]
  - Exostosis [Unknown]
  - Radiation necrosis [Unknown]
  - Fatigue [Unknown]
  - Intervertebral disc degeneration [Unknown]
  - Osteosclerosis [Unknown]
  - Dysgeusia [Unknown]
  - Skin ulcer [Unknown]
  - Death [Fatal]
  - Oral candidiasis [Unknown]
  - Joint swelling [Unknown]
  - Musculoskeletal pain [Unknown]
  - Wound [Recovering/Resolving]
  - Hypoaesthesia [Unknown]
  - Glioblastoma multiforme [Unknown]

NARRATIVE: CASE EVENT DATE: 20080706
